FAERS Safety Report 4909589-7 (Version None)
Quarter: 2006Q1

REPORT INFORMATION
  Report Type: 
  Country: None (occurrence: None)
  Receive Date: 20060213
  Receipt Date: 20051007
  Transmission Date: 20060701
  Serious: Yes (Hospitalization, Disabling)
  Sender: FDA-Public Use
  Company Number: US-MERCK-0510USA05724

PATIENT
  Age: 51 Year
  Sex: Female
  Weight: 141 kg

DRUGS (1)
  1. VIOXX [Suspect]
     Indication: ARTHRITIS
     Route: 048
     Dates: start: 20000901, end: 20040901

REACTIONS (5)
  - CARDIOVASCULAR DISORDER [None]
  - HAEMORRHAGE [None]
  - INJURY [None]
  - SURGERY [None]
  - THROMBOSIS [None]
